FAERS Safety Report 7867925-6 (Version None)
Quarter: 2011Q4

REPORT INFORMATION
  Report Type: 
  Country: None (occurrence: None)
  Receive Date: 20111028
  Receipt Date: 20111019
  Transmission Date: 20120403
  Serious: Yes (Hospitalization, Other)
  Sender: FDA-Public Use
  Company Number: PHEH2011US07271

PATIENT
  Age: 59 Year
  Sex: Female

DRUGS (1)
  1. AREDIA [Suspect]
     Dosage: UNK
     Dates: start: 20111013

REACTIONS (4)
  - NEUROLOGICAL SYMPTOM [None]
  - URINARY TRACT INFECTION [None]
  - PAIN [None]
  - SEPSIS [None]
